FAERS Safety Report 22267499 (Version 7)
Quarter: 2023Q4

REPORT INFORMATION
  Report Type: Spontaneous
  Country: US (occurrence: US)
  Receive Date: 20230429
  Receipt Date: 20231128
  Transmission Date: 20240110
  Serious: Yes (Other)
  Sender: FDA-Public Use
  Company Number: US-PFIZER INC-PV202300074805

PATIENT
  Age: 63 Year
  Sex: Male

DRUGS (3)
  1. INLYTA [Suspect]
     Active Substance: AXITINIB
     Indication: Neoplasm
     Dosage: 5 MG
     Dates: end: 20230425
  2. INLYTA [Suspect]
     Active Substance: AXITINIB
     Dosage: UNK
     Dates: start: 20230508, end: 202305
  3. INLYTA [Suspect]
     Active Substance: AXITINIB
     Dosage: 3 MG, 2X/DAY (3 TABLETS)
     Route: 048

REACTIONS (15)
  - Nephrectomy [Unknown]
  - Cerebrovascular accident [Unknown]
  - Oral surgery [Unknown]
  - Shoulder operation [Unknown]
  - Brain oedema [Unknown]
  - Nausea [Recovered/Resolved]
  - Onychomadesis [Unknown]
  - Headache [Unknown]
  - Irritability [Unknown]
  - Blood pressure increased [Recovered/Resolved]
  - Fatigue [Unknown]
  - Wound complication [Unknown]
  - Procedural pain [Unknown]
  - Decreased appetite [Unknown]
  - Nervous system disorder [Unknown]

NARRATIVE: CASE EVENT DATE: 20200101
